FAERS Safety Report 6180292-1 (Version None)
Quarter: 2009Q2

REPORT INFORMATION
  Report Type: 
  Country: None (occurrence: None)
  Receive Date: 20090504
  Receipt Date: 20090504
  Transmission Date: 20091009
  Serious: Yes (Hospitalization)
  Sender: FDA-Public Use
  Company Number: None

PATIENT
  Age: 63 Year
  Sex: Male

DRUGS (3)
  1. SIMVASTATIN [Suspect]
     Indication: FUNGAL INFECTION
     Dosage: 40 MG AT BEDTIME PO
     Route: 048
     Dates: start: 20090108, end: 20090316
  2. SIMVASTATIN [Suspect]
     Indication: HYPERLIPIDAEMIA
     Dosage: 40 MG AT BEDTIME PO
     Route: 048
     Dates: start: 20090108, end: 20090316
  3. POSACONAZOLE [Suspect]
     Indication: CELLULITIS
     Dosage: 400 MG TID PO
     Route: 048
     Dates: start: 20090209, end: 20090316

REACTIONS (5)
  - BLOOD CREATININE INCREASED [None]
  - CELLULITIS [None]
  - FUNGAL INFECTION [None]
  - MYOSITIS [None]
  - RHABDOMYOLYSIS [None]
